FAERS Safety Report 8226534-X (Version None)
Quarter: 2012Q1

REPORT INFORMATION
  Report Type: 
  Country: None (occurrence: None)
  Receive Date: 20120322
  Receipt Date: 20120314
  Transmission Date: 20120608
  Serious: Yes (Hospitalization)
  Sender: FDA-Public Use
  Company Number: US-BIOGENIDEC-2012BI009222

PATIENT
  Age: 60 Year
  Sex: Female

DRUGS (3)
  1. AVONEX [Suspect]
     Indication: MULTIPLE SCLEROSIS
     Route: 030
     Dates: start: 19961101
  2. NAPROXEN (ALEVE) [Concomitant]
  3. AVONEX [Suspect]
     Route: 030

REACTIONS (2)
  - HYPERTENSION [None]
  - GASTRIC ULCER HAEMORRHAGE [None]
